FAERS Safety Report 20199232 (Version 2)
Quarter: 2022Q3

REPORT INFORMATION
  Report Type: Spontaneous
  Country: CN (occurrence: CN)
  Receive Date: 20211217
  Receipt Date: 20220715
  Transmission Date: 20221027
  Serious: Yes (Other)
  Sender: FDA-Public Use
  Company Number: CN-GLAXOSMITHKLINE-CN2021GSK257203

PATIENT

DRUGS (3)
  1. ZEJULA [Suspect]
     Active Substance: NIRAPARIB
     Indication: Ovarian cancer
     Dosage: 300 MG, QD
     Route: 048
     Dates: start: 20210725, end: 20210928
  2. LACTULOSE [Concomitant]
     Active Substance: LACTULOSE
     Indication: Dyschezia
     Dosage: UNK
  3. DIAZEPAM [Concomitant]
     Active Substance: DIAZEPAM
     Indication: Sedation
     Dosage: 10 MG
     Route: 042

REACTIONS (12)
  - Anaemia [Recovering/Resolving]
  - Haematochezia [Unknown]
  - Delirium [Unknown]
  - Gastrointestinal motility disorder [Unknown]
  - Frequent bowel movements [Unknown]
  - Depressed mood [Unknown]
  - Negative thoughts [Unknown]
  - Agitation [Unknown]
  - Aggression [Unknown]
  - Depression [Unknown]
  - Constipation [Recovering/Resolving]
  - Poor quality sleep [Recovering/Resolving]

NARRATIVE: CASE EVENT DATE: 20210101
